FAERS Safety Report 6908945-5 (Version None)
Quarter: 2010Q3

REPORT INFORMATION
  Report Type: 
  Country: None (occurrence: None)
  Receive Date: 20100805
  Receipt Date: 20100722
  Transmission Date: 20110219
  Serious: Yes (Other)
  Sender: FDA-Public Use
  Company Number: CH-KINGPHARMUSA00001-K201000977

PATIENT
  Age: 29 Year
  Sex: Female

DRUGS (3)
  1. FLECTOR [Suspect]
     Indication: BACK DISORDER
     Dosage: 1 PATCH, QD
     Route: 061
     Dates: start: 20100101
  2. TILUR [Suspect]
     Indication: SCOLIOSIS
     Dosage: 3 DF, QD
     Route: 048
     Dates: start: 20100101
  3. CO-EFFERALGAN [Suspect]
     Indication: SCOLIOSIS
     Dosage: 5 DF, QD
     Route: 048
     Dates: start: 20100101

REACTIONS (2)
  - ABORTION SPONTANEOUS INCOMPLETE [None]
  - DRUG EXPOSURE DURING PREGNANCY [None]
